FAERS Safety Report 8776869 (Version 4)
Quarter: 2012Q4

REPORT INFORMATION
  Report Type: 
  Country: GB (occurrence: GB)
  Receive Date: 20120911
  Receipt Date: 20121228
  Transmission Date: 20130627
  Serious: Yes (Other)
  Sender: FDA-Public Use
  Company Number: GB-TEVA-356887ISR

PATIENT
  Age: 15 Year
  Sex: Female

DRUGS (4)
  1. CETIRIZINE [Suspect]
     Indication: SEASONAL ALLERGY
     Dosage: Occasional Cetirizine
     Route: 065
  2. ABILIFY [Interacting]
     Indication: BIPOLAR DISORDER
  3. NEXPLANON [Interacting]
     Indication: CONTRACEPTION
     Route: 059
  4. LAMICTAL [Interacting]
     Indication: BIPOLAR DISORDER
     Dosage: 150 Milligram Daily;
     Route: 048

REACTIONS (6)
  - Abortion spontaneous [Unknown]
  - Pregnancy [Recovered/Resolved]
  - Exposure during pregnancy [Unknown]
  - Metrorrhagia [Unknown]
  - Pregnancy with contraceptive device [Recovered/Resolved]
  - Drug interaction [Unknown]
